FAERS Safety Report 5271190-6 (Version None)
Quarter: 2007Q1

REPORT INFORMATION
  Report Type: 
  Country: None (occurrence: None)
  Receive Date: 20070315
  Receipt Date: 20070314
  Transmission Date: 20070707
  Serious: Yes (Hospitalization, Other)
  Sender: FDA-Public Use
  Company Number: GXKR2007ES01695

PATIENT
  Age: 40 Year
  Sex: Male

DRUGS (3)
  1. IBUPROFEN [Suspect]
     Indication: INFECTIOUS MONONUCLEOSIS
     Dosage: ORAL
     Route: 048
  2. ACETAMINOPHEN [Suspect]
     Indication: INFECTIOUS MONONUCLEOSIS
     Dosage: ORAL
     Route: 048
  3. VALERIANA OFFICINALIS ROOT (NGX)(VALERIANA OFFICINALIS ROOT) UNKNOWN [Suspect]
     Indication: INFECTIOUS MONONUCLEOSIS
     Dosage: ORAL
     Route: 048

REACTIONS (5)
  - DRUG INTERACTION [None]
  - EPSTEIN-BARR VIRUS INFECTION [None]
  - GENERAL PHYSICAL HEALTH DETERIORATION [None]
  - HEPATITIS ACUTE [None]
  - HEPATITIS CHOLESTATIC [None]
